FAERS Safety Report 9143056 (Version 1)
Quarter: 2013Q1

REPORT INFORMATION
  Report Type: Not Available
  Country: GB (occurrence: GB)
  Receive Date: 20130306
  Receipt Date: 20130306
  Transmission Date: 20140127
  Serious: Yes (Hospitalization, Other)
  Sender: FDA-Public Use
  Company Number: GB-ASTELLAS-2013EU001693

PATIENT
  Age: 62 Year
  Sex: Female
  Weight: 58 kg

DRUGS (7)
  1. SOLIFENACIN [Suspect]
     Indication: MICTURITION URGENCY
     Dosage: 5 MG, UNKNOWN/D
     Route: 048
     Dates: start: 20120403
  2. SOLIFENACIN [Suspect]
     Indication: MICTURITION URGENCY
     Dosage: UNK
     Route: 048
     Dates: end: 20120601
  3. CETIRIZINE [Suspect]
     Dosage: UNK
     Route: 065
  4. CO-CODAMOL [Suspect]
     Dosage: UNK
     Route: 065
  5. HYDROXYZINE [Suspect]
     Dosage: UNK
     Route: 065
  6. METOCLOPRAMIDE [Suspect]
     Dosage: UNK
     Route: 065
  7. OMEPRAZOLE [Suspect]
     Dosage: UNK
     Route: 065

REACTIONS (2)
  - Drug-induced liver injury [Unknown]
  - Jaundice [Recovered/Resolved]
